FAERS Safety Report 9821020 (Version 2)
Quarter: 2014Q1

REPORT INFORMATION
  Report Type: Spontaneous
  Country: GB (occurrence: GB)
  Receive Date: 20140116
  Receipt Date: 20140310
  Transmission Date: 20141002
  Serious: Yes (Other)
  Sender: FDA-Public Use
  Company Number: GB-BRISTOL-MYERS SQUIBB COMPANY-19993179

PATIENT
  Age: 49 Year
  Sex: Female

DRUGS (11)
  1. ORENCIA [Suspect]
     Indication: RHEUMATOID ARTHRITIS
     Dosage: 26NOV2013, 16DEC13 AND 24DEC13:500MG
     Route: 042
     Dates: start: 20131113
  2. METHOTREXATE [Concomitant]
  3. FOLIC ACID [Concomitant]
  4. PREDNISOLONE [Concomitant]
  5. ARCOXIA [Concomitant]
  6. TRAMADOL [Concomitant]
  7. PARACETAMOL [Concomitant]
  8. RANITIDINE [Concomitant]
  9. DOSULEPIN [Concomitant]
  10. CALCICHEW [Concomitant]
  11. ALENDRONATE [Concomitant]

REACTIONS (1)
  - Acute myocardial infarction [Unknown]
